FAERS Safety Report 14227950 (Version 2)
Quarter: 2017Q4

REPORT INFORMATION
  Report Type: Spontaneous
  Country: US (occurrence: US)
  Receive Date: 20171127
  Receipt Date: 20171204
  Transmission Date: 20180321
  Serious: Yes (Hospitalization, Other)
  Sender: FDA-Public Use
  Company Number: US-PFIZER INC-2017504257

PATIENT
  Age: 43 Year
  Sex: Female

DRUGS (3)
  1. CIPROFLOXACIN HCL [Suspect]
     Active Substance: CIPROFLOXACIN HYDROCHLORIDE
     Indication: ARTHROPOD BITE
     Dosage: UNK
  2. CEFALEXIN [Concomitant]
     Active Substance: CEPHALEXIN
     Indication: ARTHROPOD BITE
     Dosage: UNK
  3. AMOXICILLIN CLAVULANIC ACID [Concomitant]
     Active Substance: AMOXICILLIN\CLAVULANIC ACID
     Indication: ARTHROPOD BITE
     Dosage: UNK

REACTIONS (6)
  - Neurotoxicity [Recovered/Resolved]
  - Generalised tonic-clonic seizure [Recovered/Resolved]
  - Confusional state [Recovered/Resolved]
  - Chorea [Recovered/Resolved]
  - Stereotypy [Recovered/Resolved]
  - Dystonia [Recovered/Resolved]
